FAERS Safety Report 16909684 (Version 1)
Quarter: 2019Q4

REPORT INFORMATION
  Report Type: Spontaneous
  Country: US (occurrence: US)
  Receive Date: 20191011
  Receipt Date: 20191011
  Transmission Date: 20200122
  Serious: No
  Sender: FDA-Public Use
  Company Number: None

PATIENT
  Age: 46 Year
  Sex: Female

DRUGS (2)
  1. BOTOX [Suspect]
     Active Substance: ONABOTULINUMTOXINA
     Indication: MIGRAINE
     Dosage: ?          OTHER FREQUENCY:EVERY 84 DAYS;OTHER ROUTE:MUSCLE OF HEAD AND NECK AREA?
     Dates: start: 20180307
  2. BOTOX [Suspect]
     Active Substance: ONABOTULINUMTOXINA
     Indication: MIGRAINE
     Dosage: ?          OTHER FREQUENCY:EVERY 84 DAYS;OTHER ROUTE:CERVICAL SPINE?
     Dates: start: 20180307

REACTIONS (2)
  - Brain neoplasm [None]
  - Therapy cessation [None]

NARRATIVE: CASE EVENT DATE: 20181127
